FAERS Safety Report 7148872-4 (Version None)
Quarter: 2010Q4

REPORT INFORMATION
  Report Type: 
  Country: None (occurrence: None)
  Receive Date: 20101209
  Receipt Date: 20101202
  Transmission Date: 20110411
  Serious: Yes (Hospitalization)
  Sender: FDA-Public Use
  Company Number: FR-PFIZER INC-2010162259

PATIENT
  Age: 61 Year
  Sex: Female

DRUGS (5)
  1. TAZOCILLINE [Suspect]
     Dosage: 4 G, 2X/DAY
     Route: 042
     Dates: start: 20101104, end: 20101110
  2. AMIKIN [Suspect]
     Dosage: 1 G, UNK
     Dates: start: 20101104
  3. MOPRAL [Concomitant]
  4. INIPOMP [Concomitant]
     Route: 042
  5. MORPHINE [Concomitant]

REACTIONS (2)
  - CONFUSIONAL STATE [None]
  - DELUSION [None]
